FAERS Safety Report 7759501-0 (Version None)
Quarter: 2011Q3

REPORT INFORMATION
  Report Type: 
  Country: None (occurrence: None)
  Receive Date: 20110919
  Receipt Date: 20110919
  Transmission Date: 20111222
  Serious: Yes (Hospitalization)
  Sender: FDA-Public Use
  Company Number: None

PATIENT
  Sex: Male
  Weight: 1190.6 kg

DRUGS (1)
  1. DICLOFENAC SODIUM [Suspect]
     Indication: JOINT SWELLING
     Dosage: 4MG
     Route: 061
     Dates: start: 20110831, end: 20110902

REACTIONS (6)
  - INFLUENZA LIKE ILLNESS [None]
  - ASTHENIA [None]
  - NAUSEA [None]
  - FATIGUE [None]
  - RASH [None]
  - DEEP VEIN THROMBOSIS [None]
